FAERS Safety Report 21635373 (Version 2)
Quarter: 2022Q4

REPORT INFORMATION
  Report Type: Spontaneous
  Country: US (occurrence: US)
  Receive Date: 20221123
  Receipt Date: 20221220
  Transmission Date: 20230112
  Serious: Yes (Hospitalization, Other)
  Sender: FDA-Public Use
  Company Number: US-PFIZER INC-202201323133

PATIENT
  Age: 73 Year
  Sex: Female
  Weight: 102.96 kg

DRUGS (3)
  1. VYNDAMAX [Suspect]
     Active Substance: TAFAMIDIS
     Indication: Amyloidosis
     Dosage: 61 MG, 1X/DAY
     Dates: start: 2019
  2. HYDROCODONE [Concomitant]
     Active Substance: HYDROCODONE
     Dosage: 7.5 MG
     Dates: start: 2021
  3. RENAPLEX D [Concomitant]
     Dosage: UNK, 1X/DAY
     Route: 048
     Dates: start: 2021

REACTIONS (3)
  - Nephropathy [Not Recovered/Not Resolved]
  - Renal failure [Not Recovered/Not Resolved]
  - Off label use [Unknown]

NARRATIVE: CASE EVENT DATE: 20210301
